FAERS Safety Report 7028485-5 (Version None)
Quarter: 2010Q4

REPORT INFORMATION
  Report Type: 
  Country: None (occurrence: None)
  Receive Date: 20101005
  Receipt Date: 20100923
  Transmission Date: 20110411
  Serious: Yes (Death)
  Sender: FDA-Public Use
  Company Number: US-PFIZER INC-2010084429

PATIENT
  Age: 54 Year
  Sex: Female
  Weight: 50.3 kg

DRUGS (9)
  1. BLINDED *NO SUBJECT DRUG [Suspect]
     Indication: NON-SMALL CELL LUNG CANCER
     Dosage: 37.5 MG, 1X/DAY
     Route: 048
     Dates: start: 20100608, end: 20100627
  2. BLINDED *PLACEBO [Suspect]
     Indication: NON-SMALL CELL LUNG CANCER
     Dosage: 37.5 MG, 1X/DAY
     Route: 048
     Dates: start: 20100608, end: 20100627
  3. SUNITINIB MALATE [Suspect]
     Indication: NON-SMALL CELL LUNG CANCER
     Dosage: 37.5 MG, 1X/DAY
     Route: 048
     Dates: start: 20100608, end: 20100627
  4. COLACE [Concomitant]
  5. SENNA [Concomitant]
  6. OXYCODONE [Concomitant]
  7. BENZONATATE [Concomitant]
  8. METOPROLOL [Concomitant]
  9. FAMOTIDINE [Concomitant]

REACTIONS (1)
  - PULMONARY HAEMORRHAGE [None]
